FAERS Safety Report 8507167-4 (Version None)
Quarter: 2012Q3

REPORT INFORMATION
  Report Type: 
  Country: None (occurrence: None)
  Receive Date: 20120712
  Receipt Date: 20120710
  Transmission Date: 20120928
  Serious: Yes (Life-Threatening, Hospitalization)
  Sender: FDA-Public Use
  Company Number: PHHY2012NO059187

PATIENT
  Sex: Female

DRUGS (5)
  1. CALCIGRAN FORTE [Concomitant]
  2. ATENOLOL [Concomitant]
  3. ALENDRONATE SODIUM [Suspect]
     Indication: OSTEOPOROSIS
     Route: 048
  4. ADALAT [Concomitant]
  5. PREDNISOLONE [Suspect]

REACTIONS (3)
  - ANAEMIA [None]
  - GASTRIC ULCER HAEMORRHAGE [None]
  - GASTRIC ULCER [None]
